FAERS Safety Report 12724116 (Version 1)
Quarter: 2016Q3

REPORT INFORMATION
  Report Type: Spontaneous
  Country: US (occurrence: US)
  Receive Date: 20160907
  Receipt Date: 20160907
  Transmission Date: 20161109
  Serious: Yes (Disabling)
  Sender: FDA-Public Use
  Company Number: None

PATIENT
  Age: 51 Year
  Sex: Female
  Weight: 76.5 kg

DRUGS (1)
  1. CIPRPFLOXIN [Suspect]
     Active Substance: CIPROFLOXACIN
     Indication: KIDNEY INFECTION
     Route: 048
     Dates: start: 20140112

REACTIONS (26)
  - Myalgia [None]
  - Rheumatoid arthritis [None]
  - Back disorder [None]
  - Fatigue [None]
  - Loss of employment [None]
  - Pain [None]
  - Asthenia [None]
  - Nausea [None]
  - Memory impairment [None]
  - Educational problem [None]
  - Blood test abnormal [None]
  - Nervous system disorder [None]
  - Epstein-Barr virus test positive [None]
  - Skin discolouration [None]
  - Hair growth abnormal [None]
  - Pain in extremity [None]
  - Musculoskeletal disorder [None]
  - Arthralgia [None]
  - Gait disturbance [None]
  - Tendon pain [None]
  - Swelling [None]
  - Movement disorder [None]
  - Neuropathy peripheral [None]
  - Hypoaesthesia [None]
  - Pyrexia [None]
  - Dysstasia [None]

NARRATIVE: CASE EVENT DATE: 20140112
